FAERS Safety Report 15866713 (Version 1)
Quarter: 2019Q1

REPORT INFORMATION
  Report Type: Other
  Country: IT (occurrence: IT)
  Receive Date: 20190125
  Receipt Date: 20190125
  Transmission Date: 20190417
  Serious: Yes (Hospitalization)
  Sender: FDA-Public Use
  Company Number: IT-APOTEX-2019AP006783

PATIENT
  Age: 53 Year
  Sex: Male
  Weight: 70 kg

DRUGS (2)
  1. TOPIRAMATE. [Suspect]
     Active Substance: TOPIRAMATE
     Indication: EPILEPSY
     Dosage: 100 ?G, QD
     Route: 065
  2. VALPROATE SODIUM W/VALPROIC ACID [Concomitant]
     Active Substance: VALPROIC ACID
     Indication: EPILEPSY
     Dosage: 500 ?G, UNK
     Route: 048
     Dates: start: 20181120, end: 20181201

REACTIONS (2)
  - Confusional state [Recovering/Resolving]
  - Intentional product misuse [Recovering/Resolving]

NARRATIVE: CASE EVENT DATE: 20181120
